FAERS Safety Report 6437142-5 (Version None)
Quarter: 2009Q4

REPORT INFORMATION
  Report Type: 
  Country: None (occurrence: None)
  Receive Date: 20091102
  Receipt Date: 20091019
  Transmission Date: 20100525
  Serious: Yes (Hospitalization)
  Sender: FDA-Public Use
  Company Number: 20091019CINRY1203

PATIENT
  Age: 54 Year
  Sex: Male

DRUGS (2)
  1. CINRYZE   (C1 ESTERASE INHIBITORS [HUMAN]) [Suspect]
     Indication: HEREDITARY ANGIOEDEMA
     Dosage: (1000 UNIT, 1 IN 1 WK), INTRAVENOUS
     Route: 042
     Dates: start: 20090601
  2. CINRYZE   (C1 ESTERASE INHIBITORS [HUMAN]) [Suspect]
     Indication: PROPHYLAXIS
     Dosage: (1000 UNIT, 1 IN 1 WK), INTRAVENOUS
     Route: 042
     Dates: start: 20090601

REACTIONS (3)
  - EPISTAXIS [None]
  - HAEMOGLOBIN DECREASED [None]
  - OEDEMA PERIPHERAL [None]
